FAERS Safety Report 10345110 (Version 1)
Quarter: 2014Q3

REPORT INFORMATION
  Report Type: Spontaneous
  Country: US (occurrence: None)
  Receive Date: 20140724
  Receipt Date: 20140724
  Transmission Date: 20150326
  Serious: Yes (Other)
  Sender: FDA-Public Use
  Company Number: AUR-APL-2014-07826

PATIENT
  Age: 29 Month
  Sex: Female

DRUGS (2)
  1. CELLCEPT [Suspect]
     Active Substance: MYCOPHENOLATE MOFETIL\MYCOPHENOLATE MOFETIL HYDROCHLORIDE
     Indication: PRODUCT USED FOR UNKNOWN INDICATION
  2. CIPROFLOXACIN (CIPROFLOXACIN) UNKNOWN, UNKNOWN [Suspect]
     Active Substance: CIPROFLOXACIN
     Indication: VIRAEMIA
     Dosage: 108AE 15 MG/KG/DOSE UP TO 500MG TWICE PER DAY, UNKNOWN

REACTIONS (2)
  - Off label use [None]
  - Diarrhoea [None]
